FAERS Safety Report 7343072-7 (Version None)
Quarter: 2011Q1

REPORT INFORMATION
  Report Type: 
  Country: None (occurrence: None)
  Receive Date: 20110302
  Receipt Date: 20110214
  Transmission Date: 20110831
  Serious: Yes (Hospitalization, Other)
  Sender: FDA-Public Use
  Company Number: 2009S1002609

PATIENT
  Age: 77 Year
  Sex: Female
  Weight: 56.246 kg

DRUGS (8)
  1. HYDROCHLOROTHIAZIDE [Concomitant]
  2. CALCIUM + VITAMIN D [Concomitant]
  3. LISINOPRIL [Concomitant]
  4. ASPIRIN [Concomitant]
  5. PHOSPHOSODA FLAVOR NOT SPECIFIED [Suspect]
     Indication: COLONOSCOPY
     Dosage: PO
     Route: 048
     Dates: start: 20080210, end: 20080210
  6. NORVASC [Concomitant]
  7. ZETIA [Concomitant]
  8. FOSAMAX [Concomitant]

REACTIONS (6)
  - NAUSEA [None]
  - HYPOKALAEMIA [None]
  - ANAEMIA [None]
  - RENAL FAILURE ACUTE [None]
  - ABDOMINAL DISCOMFORT [None]
  - HYPERCALCAEMIA [None]
